FAERS Safety Report 5133855-6 (Version None)
Quarter: 2006Q4

REPORT INFORMATION
  Report Type: 
  Country: None (occurrence: None)
  Receive Date: 20061018
  Receipt Date: 20060929
  Transmission Date: 20070319
  Serious: Yes (Hospitalization, Other)
  Sender: FDA-Public Use
  Company Number: US200609007413

PATIENT
  Age: 80 Year
  Sex: Female

DRUGS (4)
  1. CYMBALTA [Suspect]
     Indication: PAIN
     Dosage: 30 MG
     Dates: start: 20060901, end: 20060901
  2. COUMADIN [Concomitant]
  3. METOPROLOL TARTRATE [Concomitant]
  4. SKELAXIN [Concomitant]

REACTIONS (4)
  - CARDIAC FAILURE CONGESTIVE [None]
  - INAPPROPRIATE ANTIDIURETIC HORMONE SECRETION [None]
  - LIVER FUNCTION TEST ABNORMAL [None]
  - LUNG DISORDER [None]
